FAERS Safety Report 6136568-7 (Version None)
Quarter: 2009Q1

REPORT INFORMATION
  Report Type: 
  Country: None (occurrence: None)
  Receive Date: 20090330
  Receipt Date: 20090326
  Transmission Date: 20090719
  Serious: Yes (Other)
  Sender: FDA-Public Use
  Company Number: US-ASTRAZENECA-2009UW07818

PATIENT
  Age: 55 Year
  Sex: Female

DRUGS (1)
  1. SYMBICORT [Suspect]
     Dosage: 160/4.5
     Route: 055
     Dates: start: 20090201

REACTIONS (3)
  - COUGH [None]
  - DYSPNOEA [None]
  - THROAT TIGHTNESS [None]
